FAERS Safety Report 8958410 (Version 3)
Quarter: 2013Q1

REPORT INFORMATION
  Report Type: Spontaneous
  Country: JP (occurrence: JP)
  Receive Date: 20121210
  Receipt Date: 20130328
  Transmission Date: 20140127
  Serious: Yes (Hospitalization)
  Sender: FDA-Public Use
  Company Number: JP-GLAXOSMITHKLINE-B0850976A

PATIENT
  Age: 60 Year
  Sex: Female
  Weight: 60 kg

DRUGS (4)
  1. HYCAMTIN [Suspect]
     Indication: OVARIAN CANCER RECURRENT
     Dosage: 1.4MGM2 PER DAY
     Route: 042
     Dates: start: 20121029, end: 20121207
  2. ALOXI [Concomitant]
     Route: 065
     Dates: start: 20121029, end: 20121207
  3. DECADRON [Concomitant]
     Route: 065
     Dates: start: 20121029, end: 20121102
  4. DECADRON [Concomitant]
     Route: 065
     Dates: start: 20121203, end: 20121207

REACTIONS (10)
  - Loss of consciousness [Recovered/Resolved]
  - Nausea [Recovered/Resolved]
  - Decreased appetite [Recovered/Resolved]
  - White blood cell count decreased [Recovered/Resolved]
  - Neutrophil count decreased [Recovered/Resolved]
  - Red blood cell count decreased [Recovered/Resolved]
  - Anaemia [Recovered/Resolved]
  - Platelet count decreased [Recovered/Resolved]
  - Dizziness [Recovered/Resolved]
  - Liver disorder [Unknown]
